FAERS Safety Report 8933077 (Version 5)
Quarter: 2013Q2

REPORT INFORMATION
  Report Type: Spontaneous
  Country: US (occurrence: US)
  Receive Date: 20121129
  Receipt Date: 20130429
  Transmission Date: 20140414
  Serious: Yes (Hospitalization)
  Sender: FDA-Public Use
  Company Number: US-BIOGENIDEC-2012BI054551

PATIENT
  Age: 41 Year
  Sex: Female

DRUGS (13)
  1. TYSABRI [Suspect]
     Indication: MULTIPLE SCLEROSIS
     Route: 042
     Dates: start: 20090909, end: 20121108
  2. TIZANIDINE [Concomitant]
  3. LEXAPRO [Concomitant]
  4. PANTOPRAZOLE [Concomitant]
  5. OXYBUTYNIN [Concomitant]
  6. REMERON [Concomitant]
  7. NUVIGIL [Concomitant]
  8. SOLUMEDROL [Concomitant]
  9. SELZENTRY [Concomitant]
  10. KEPPRA [Concomitant]
  11. LISONOPRIL [Concomitant]
  12. BACLOFEN [Concomitant]
  13. PREDNISIONE [Concomitant]

REACTIONS (3)
  - Progressive multifocal leukoencephalopathy [Unknown]
  - Escherichia bacteraemia [Unknown]
  - Enterococcal bacteraemia [Unknown]
